FAERS Safety Report 24535600 (Version 1)
Quarter: 2024Q4

REPORT INFORMATION
  Report Type: Spontaneous
  Country: US (occurrence: US)
  Receive Date: 20241022
  Receipt Date: 20241022
  Transmission Date: 20250115
  Serious: No
  Sender: JAZZ
  Company Number: US-JAZZ PHARMACEUTICALS-2024-US-002365

PATIENT

DRUGS (1)
  1. XYREM [Suspect]
     Active Substance: SODIUM OXYBATE
     Indication: Product use in unapproved indication
     Dosage: 9 GRAM

REACTIONS (3)
  - Nocturia [Unknown]
  - Vomiting [Unknown]
  - Paranoia [Unknown]
